FAERS Safety Report 23107231 (Version 1)
Quarter: 2023Q4

REPORT INFORMATION
  Report Type: Other
  Country: US (occurrence: US)
  Receive Date: 20231026
  Receipt Date: 20231026
  Transmission Date: 20240110
  Serious: Yes (Life-Threatening, Hospitalization, Other)
  Sender: FDA-Public Use
  Company Number: None

PATIENT
  Age: 21 Year
  Sex: Female

DRUGS (1)
  1. VENLAFAXINE [Suspect]
     Active Substance: VENLAFAXINE HYDROCHLORIDE
     Indication: Suicide attempt
     Dosage: EXTENDED-RELEASE ; IN TOTAL
     Route: 048

REACTIONS (8)
  - Multiple organ dysfunction syndrome [Recovering/Resolving]
  - Intentional overdose [Recovering/Resolving]
  - Generalised tonic-clonic seizure [Recovering/Resolving]
  - Electrocardiogram QT prolonged [Recovering/Resolving]
  - Cardiogenic shock [Recovering/Resolving]
  - Transaminases increased [Recovering/Resolving]
  - Left ventricular dysfunction [Recovering/Resolving]
  - Hypotension [Recovering/Resolving]
